FAERS Safety Report 6817415-4 (Version None)
Quarter: 2010Q3

REPORT INFORMATION
  Report Type: 
  Country: None (occurrence: None)
  Receive Date: 20100706
  Receipt Date: 20100630
  Transmission Date: 20110219
  Serious: Yes (Life-Threatening)
  Sender: FDA-Public Use
  Company Number: A0854835A

PATIENT
  Age: 68 Year
  Sex: Male
  Weight: 123 kg

DRUGS (7)
  1. PAZOPANIB [Suspect]
     Indication: PROSTATE CANCER
     Dosage: 800MG PER DAY
     Route: 048
     Dates: start: 20091007
  2. LIPITOR [Concomitant]
  3. GLUCOPHAGE [Concomitant]
  4. HYDRODIURIL [Concomitant]
  5. PRINIVIL [Concomitant]
  6. PRILOSEC [Concomitant]
  7. ASPIRIN [Concomitant]

REACTIONS (2)
  - DYSPNOEA EXERTIONAL [None]
  - PULMONARY EMBOLISM [None]
